FAERS Safety Report 17127506 (Version 1)
Quarter: 2019Q4

REPORT INFORMATION
  Report Type: Spontaneous
  Country: US (occurrence: US)
  Receive Date: 20191209
  Receipt Date: 20191209
  Transmission Date: 20200122
  Serious: Yes (Death, Other)
  Sender: FDA-Public Use
  Company Number: US-GLAXOSMITHKLINE-US2019220443

PATIENT
  Sex: Male

DRUGS (1)
  1. INCRUSE ELLIPTA [Suspect]
     Active Substance: UMECLIDINIUM BROMIDE
     Indication: PRODUCT USED FOR UNKNOWN INDICATION
     Dosage: UNK
     Route: 065

REACTIONS (14)
  - Asphyxia [Fatal]
  - Cardiac arrest [Fatal]
  - Gastrointestinal haemorrhage [Fatal]
  - Cough [Unknown]
  - Lethargy [Unknown]
  - Respiratory arrest [Fatal]
  - Nasal congestion [Unknown]
  - Dysphagia [Unknown]
  - Beta haemolytic streptococcal infection [Fatal]
  - Acute kidney injury [Fatal]
  - Nasopharyngitis [Unknown]
  - Chest discomfort [Unknown]
  - Increased viscosity of upper respiratory secretion [Unknown]
  - Asthenia [Unknown]
